FAERS Safety Report 9422668 (Version 2)
Quarter: 2013Q3

REPORT INFORMATION
  Report Type: Spontaneous
  Country: US (occurrence: US)
  Receive Date: 20130726
  Receipt Date: 20130802
  Transmission Date: 20140515
  Serious: Yes (Other)
  Sender: FDA-Public Use
  Company Number: US-PFIZER INC-2013217512

PATIENT
  Sex: Female

DRUGS (3)
  1. PROTONIX [Suspect]
     Dosage: 40 MG, (ONCE A DAY, TWO TIMES A DAY AND SOMETIMES THREE TIMES A DAY)
  2. PROTONIX [Suspect]
     Dosage: 40 MG, 2X/DAY
  3. ZANTAC [Concomitant]
     Dosage: UNK, 1X/DAY

REACTIONS (3)
  - Wrist fracture [Unknown]
  - Mental disorder [Unknown]
  - Inappropriate schedule of drug administration [Unknown]
